FAERS Safety Report 19274497 (Version 2)
Quarter: 2021Q2

REPORT INFORMATION
  Report Type: Spontaneous
  Country: US (occurrence: US)
  Receive Date: 20210519
  Receipt Date: 20210623
  Transmission Date: 20210717
  Serious: No
  Sender: FDA-Public Use
  Company Number: US-GLENMARK PHARMACEUTICALS-2021GMK053086

PATIENT

DRUGS (1)
  1. ESTRADIOL VAGINAL TABLETS 10 MCG [Suspect]
     Active Substance: ESTRADIOL
     Indication: PRODUCT USED FOR UNKNOWN INDICATION
     Dosage: UNK, THREE TIMES IN A WEEK)
     Route: 067
     Dates: start: 202011

REACTIONS (2)
  - Product use issue [Unknown]
  - No adverse event [Unknown]
